FAERS Safety Report 9596839 (Version 2)
Quarter: 2013Q4

REPORT INFORMATION
  Report Type: Report from Study
  Country: US (occurrence: US)
  Receive Date: 20131004
  Receipt Date: 20131004
  Transmission Date: 20140711
  Serious: Yes (Other)
  Sender: FDA-Public Use
  Company Number: US-US-EMD SERONO, INC.-7227598

PATIENT
  Sex: Female

DRUGS (3)
  1. REBIF [Suspect]
     Indication: MULTIPLE SCLEROSIS
     Route: 058
  2. REBIF [Suspect]
     Route: 058
     Dates: start: 20110505
  3. ACTHAR [Suspect]
     Indication: MULTIPLE SCLEROSIS RELAPSE
     Dates: start: 201309, end: 20130925

REACTIONS (6)
  - Blood glucose increased [Recovered/Resolved]
  - Swelling face [Recovering/Resolving]
  - Tremor [Not Recovered/Not Resolved]
  - Injection site scar [Not Recovered/Not Resolved]
  - Multiple sclerosis relapse [Not Recovered/Not Resolved]
  - Injection site bruising [Not Recovered/Not Resolved]
